FAERS Safety Report 8480176-X (Version None)
Quarter: 2012Q2

REPORT INFORMATION
  Report Type: 
  Country: None (occurrence: None)
  Receive Date: 20120629
  Receipt Date: 20120625
  Transmission Date: 20120825
  Serious: Yes (Death, Other)
  Sender: FDA-Public Use
  Company Number: US-MERCK-1206USA04376

PATIENT
  Sex: Female

DRUGS (2)
  1. ACTONEL [Suspect]
     Route: 065
  2. FOSAMAX [Suspect]
     Route: 065

REACTIONS (2)
  - DEATH [None]
  - FEMUR FRACTURE [None]
